FAERS Safety Report 21588676 (Version 2)
Quarter: 2023Q1

REPORT INFORMATION
  Report Type: Spontaneous
  Country: US (occurrence: US)
  Receive Date: 20221114
  Receipt Date: 20230116
  Transmission Date: 20230417
  Serious: Yes (Other)
  Sender: FDA-Public Use
  Company Number: US-ORGANON-O2211USA000991

PATIENT
  Sex: Female
  Weight: 55.16 kg

DRUGS (1)
  1. NEXPLANON [Suspect]
     Active Substance: ETONOGESTREL
     Dosage: 1 IMPLANT (68 MILLIGRAM) IN LEFT UPPER ARM
     Route: 059
     Dates: start: 20220516, end: 20221109

REACTIONS (3)
  - Device dislocation [Recovered/Resolved]
  - Device breakage [Recovered/Resolved]
  - No adverse event [Unknown]

NARRATIVE: CASE EVENT DATE: 20220101
